FAERS Safety Report 14374165 (Version 3)
Quarter: 2018Q1

REPORT INFORMATION
  Report Type: Spontaneous
  Country: JP (occurrence: JP)
  Receive Date: 20180111
  Receipt Date: 20180201
  Transmission Date: 20180509
  Serious: Yes (Death)
  Sender: FDA-Public Use
  Company Number: JP-BEH-2018086750

PATIENT
  Age: 66 Year
  Sex: Female
  Weight: 80 kg

DRUGS (9)
  1. KCENTRA [Suspect]
     Active Substance: COAGULATION FACTOR IX HUMAN\COAGULATION FACTOR VII HUMAN\COAGULATION FACTOR X HUMAN\PROTEIN C\PROTEIN S HUMAN\PROTHROMBIN
     Indication: CEREBRAL HAEMORRHAGE
     Dosage: 2000 IU, OD
     Route: 042
     Dates: start: 20180102, end: 20180102
  2. WARFARIN [Concomitant]
     Active Substance: WARFARIN
     Indication: THROMBOSIS PROPHYLAXIS
     Dosage: 0.5 MG, OD
     Route: 048
     Dates: end: 20171228
  3. PAROXETINE. [Concomitant]
     Active Substance: PAROXETINE
     Indication: ANXIETY DISORDER
     Dosage: 20 MG, BID
     Route: 048
     Dates: end: 20180102
  4. CALONAL [Concomitant]
     Active Substance: ACETAMINOPHEN
     Indication: ANALGESIC THERAPY
     Dosage: 500 MG, PRN
     Route: 048
     Dates: start: 20171228
  5. SUVOREXANT. [Concomitant]
     Active Substance: SUVOREXANT
     Indication: ANXIETY DISORDER
     Dosage: 15 MG, OD
     Route: 048
     Dates: end: 20180102
  6. KCENTRA [Suspect]
     Active Substance: COAGULATION FACTOR IX HUMAN\COAGULATION FACTOR VII HUMAN\COAGULATION FACTOR X HUMAN\PROTEIN C\PROTEIN S HUMAN\PROTHROMBIN
     Indication: HAEMOSTASIS
  7. QUETIAPINE. [Concomitant]
     Active Substance: QUETIAPINE
     Indication: ANXIETY DISORDER
     Dosage: 25 MG, BID
     Route: 048
     Dates: end: 20180102
  8. RIVOTRIL [Concomitant]
     Active Substance: CLONAZEPAM
     Indication: ANXIETY DISORDER
     Dosage: .05 MG, OD
     Route: 048
     Dates: end: 20180102
  9. LIXIANA [Suspect]
     Active Substance: EDOXABAN TOSYLATE
     Indication: PULMONARY EMBOLISM
     Dosage: 60 MG, OD
     Route: 048
     Dates: start: 20180101

REACTIONS (1)
  - Cerebral haemorrhage [Fatal]

NARRATIVE: CASE EVENT DATE: 20180102
